FAERS Safety Report 26050919 (Version 1)
Quarter: 2025Q4

REPORT INFORMATION
  Report Type: Spontaneous
  Country: EU (occurrence: None)
  Receive Date: 20251116
  Receipt Date: 20251116
  Transmission Date: 20260118
  Serious: Yes (Life-Threatening, Hospitalization, Other)
  Sender: ORGANON
  Company Number: None

PATIENT
  Age: 44 Year
  Sex: Male

DRUGS (4)
  1. MIRTAZAPINE [Suspect]
     Active Substance: MIRTAZAPINE
     Dosage: NOT KNOW
  2. OLANZAPINE [Suspect]
     Active Substance: OLANZAPINE
     Dosage: NOT KNOW
  3. FLURAZEPAM [Suspect]
     Active Substance: FLURAZEPAM HYDROCHLORIDE
     Dosage: NOT KNOW
  4. DELORAZEPAM [Suspect]
     Active Substance: DELORAZEPAM
     Dosage: NOT KNOW

REACTIONS (4)
  - Respiratory failure [Not Recovered/Not Resolved]
  - Coma [Not Recovered/Not Resolved]
  - Drug abuse [Recovered/Resolved]
  - Intentional self-injury [Recovered/Resolved]

NARRATIVE: CASE EVENT DATE: 20251101
